FAERS Safety Report 7457371-1 (Version None)
Quarter: 2011Q2

REPORT INFORMATION
  Report Type: 
  Country: None (occurrence: None)
  Receive Date: 20110504
  Receipt Date: 20110428
  Transmission Date: 20111010
  Serious: Yes (Death, Other)
  Sender: FDA-Public Use
  Company Number: IT-CELGENEUS-083-C5013-11021501

PATIENT
  Sex: Female
  Weight: 60 kg

DRUGS (14)
  1. MELPHALAN [Suspect]
     Indication: MULTIPLE MYELOMA
     Route: 048
     Dates: start: 20080130, end: 20081013
  2. EPREX [Concomitant]
     Dosage: 5714.2857 INTERNATIONAL UNITS MILLIONS
     Route: 058
  3. PLATELETS [Concomitant]
     Indication: MULTIPLE MYELOMA
     Route: 065
     Dates: start: 20090127, end: 20090127
  4. NORMIX [Concomitant]
     Dosage: 800 MILLIGRAM
     Route: 048
  5. ZOLOFT [Concomitant]
     Dosage: 50 MILLIGRAM
     Route: 048
  6. PREDNISONE [Suspect]
     Indication: MULTIPLE MYELOMA
     Route: 048
     Dates: start: 20080130, end: 20081013
  7. LENALIDOMIDE [Suspect]
     Indication: MULTIPLE MYELOMA
     Dosage: 10 MILLIGRAM
     Route: 048
     Dates: start: 20080131, end: 20081129
  8. EUTIROX [Concomitant]
     Indication: HYPOTHYROIDISM
     Route: 048
  9. PLATELETS [Concomitant]
     Route: 065
     Dates: start: 20090130, end: 20090130
  10. PLATELETS [Concomitant]
     Route: 065
     Dates: start: 20090209, end: 20090209
  11. PLATELETS [Concomitant]
     Route: 065
     Dates: start: 20090302, end: 20090302
  12. ANTRA [Concomitant]
     Route: 048
  13. TRANEX [Concomitant]
     Dosage: 2 VIALS TWICE A DAY
     Route: 065
  14. PLATELETS [Concomitant]
     Route: 065
     Dates: start: 20090203, end: 20090203

REACTIONS (1)
  - CHRONIC MYELOMONOCYTIC LEUKAEMIA [None]
